FAERS Safety Report 7103121-8 (Version None)
Quarter: 2010Q4

REPORT INFORMATION
  Report Type: 
  Country: None (occurrence: None)
  Receive Date: 20101115
  Receipt Date: 20101101
  Transmission Date: 20110411
  Serious: Yes (Hospitalization, Other)
  Sender: FDA-Public Use
  Company Number: US-SHIONOGI USA, INC-2010000067

PATIENT
  Age: 3 Month
  Sex: Female

DRUGS (2)
  1. ORAPRED [Suspect]
     Indication: HAEMANGIOMA
     Dosage: 3.5 MG/KG, QD
     Route: 048
  2. METHYLPREDNISOLONE [Suspect]
     Indication: HAEMANGIOMA
     Dosage: 3 MG/KG, QD
     Route: 042

REACTIONS (1)
  - PNEUMOCYSTIS JIROVECI PNEUMONIA [None]
